FAERS Safety Report 20868445 (Version 2)
Quarter: 2022Q3

REPORT INFORMATION
  Report Type: Report from Study
  Country: US (occurrence: US)
  Receive Date: 20220524
  Receipt Date: 20220808
  Transmission Date: 20221026
  Serious: Yes (Hospitalization, Other)
  Sender: FDA-Public Use
  Company Number: US-AMGEN-USACT2022068838

PATIENT
  Age: 76 Year
  Sex: Male
  Weight: 111.4 kg

DRUGS (2)
  1. SOTORASIB [Suspect]
     Active Substance: SOTORASIB
     Indication: Lung adenocarcinoma
     Dosage: UNK, (TOTAL DOSE ADMINISTERED: 16320 MG)
     Route: 065
     Dates: start: 20220228, end: 20220406
  2. SOTORASIB [Suspect]
     Active Substance: SOTORASIB
     Dosage: UNK, RESTARTED ON REDUCED DOSE (TOTAL DOSE ADMINISTERED: 960 MG)
     Route: 065
     Dates: start: 20220411, end: 20220506

REACTIONS (11)
  - Dehydration [Recovered/Resolved]
  - Blood creatinine increased [Recovered/Resolved]
  - Diarrhoea [Recovered/Resolved]
  - Diarrhoea [Recovered/Resolved]
  - Aspartate aminotransferase increased [Recovered/Resolved]
  - Alanine aminotransferase increased [Recovered/Resolved]
  - Blood alkaline phosphatase increased [Recovered/Resolved]
  - Hypoalbuminaemia [Recovered/Resolved]
  - Hyponatraemia [Recovered/Resolved]
  - Pneumonia [Recovered/Resolved]
  - Fatigue [Recovering/Resolving]

NARRATIVE: CASE EVENT DATE: 20220406
